FAERS Safety Report 7543424-6 (Version None)
Quarter: 2011Q2

REPORT INFORMATION
  Report Type: 
  Country: None (occurrence: None)
  Receive Date: 20110613
  Receipt Date: 20110531
  Transmission Date: 20111010
  Serious: Yes (Disabling)
  Sender: FDA-Public Use
  Company Number: JP-UCBSA-034212

PATIENT
  Age: 35 Year
  Sex: Female

DRUGS (2)
  1. KEPPRA [Suspect]
     Route: 048
     Dates: start: 20110101
  2. KEPPRA [Suspect]
     Route: 048
     Dates: start: 20110101, end: 20110101

REACTIONS (1)
  - MUSCULOSKELETAL STIFFNESS [None]
